FAERS Safety Report 6045116-1 (Version None)
Quarter: 2009Q1

REPORT INFORMATION
  Report Type: 
  Country: None (occurrence: None)
  Receive Date: 20090116
  Receipt Date: 20090116
  Transmission Date: 20090719
  Serious: Yes (Hospitalization)
  Sender: FDA-Public Use
  Company Number: None

PATIENT
  Sex: Female
  Weight: 101 kg

DRUGS (2)
  1. CYTARABINE [Suspect]
     Dosage: 2640 MG
     Dates: end: 20081029
  2. DAUNORUBICIN HCL [Suspect]
     Dosage: 390 MG
     Dates: end: 20081026

REACTIONS (8)
  - BACTERIA BLOOD IDENTIFIED [None]
  - ENTEROCOCCAL INFECTION [None]
  - FEBRILE NEUTROPENIA [None]
  - FUSARIUM INFECTION [None]
  - INFLAMMATION [None]
  - PSEUDOMONAS INFECTION [None]
  - SINUS DISORDER [None]
  - SINUSITIS [None]
